FAERS Safety Report 5390458-6 (Version None)
Quarter: 2007Q3

REPORT INFORMATION
  Report Type: 
  Country: None (occurrence: None)
  Receive Date: 20070718
  Receipt Date: 20060628
  Transmission Date: 20080115
  Serious: No
  Sender: FDA-Public Use
  Company Number: US-KINGPHARMUSA00001-K200600854

PATIENT

DRUGS (5)
  1. LEVOXYL [Suspect]
     Dosage: 200 MCG, QD
     Route: 048
  2. RISPERDAL [Concomitant]
     Route: 048
     Dates: end: 20060601
  3. PROZAC [Concomitant]
     Route: 048
  4. DARVOCET [Concomitant]
     Dosage: 100 MG, UNK
     Route: 048
     Dates: start: 20060608
  5. PENICILLIN G POTASSIUM [Concomitant]
     Dosage: 500 MG, UNK
     Route: 048
     Dates: start: 20060608

REACTIONS (3)
  - HEADACHE [None]
  - LIMB DISCOMFORT [None]
  - NAUSEA [None]
